FAERS Safety Report 5454090-8 (Version None)
Quarter: 2007Q3

REPORT INFORMATION
  Report Type: 
  Country: None (occurrence: None)
  Receive Date: 20070917
  Receipt Date: 20070228
  Transmission Date: 20080115
  Serious: No
  Sender: FDA-Public Use
  Company Number: US-ASTRAZENECA-2006UW07624

PATIENT
  Age: 632 Month
  Sex: Female
  Weight: 111.4 kg

DRUGS (5)
  1. SEROQUEL [Suspect]
     Indication: BIPOLAR DISORDER
     Dosage: 100 TO 300 MG
     Route: 048
     Dates: start: 19991201, end: 20031201
  2. SEROQUEL [Suspect]
     Dosage: 100 TO 300 MG PO
     Route: 048
     Dates: start: 20040401, end: 20050901
  3. ABILIFY [Suspect]
     Dosage: 5 TO 10 MG
     Dates: start: 20050901, end: 20051001
  4. GEODON [Suspect]
     Dosage: 40 TO 120 MG
     Dates: start: 20051001
  5. RISPERDAL [Suspect]
     Dosage: 1 TO 2 MG
     Dates: start: 19950701, end: 20060101

REACTIONS (2)
  - DIABETES MELLITUS [None]
  - SARCOIDOSIS [None]
